FAERS Safety Report 16911058 (Version 2)
Quarter: 2019Q4

REPORT INFORMATION
  Report Type: Spontaneous
  Country: NZ (occurrence: NZ)
  Receive Date: 20191012
  Receipt Date: 20191104
  Transmission Date: 20200122
  Serious: Yes (Death, Hospitalization)
  Sender: FDA-Public Use
  Company Number: NZ-ABBVIE-19K-118-2958996-00

PATIENT
  Sex: Male

DRUGS (1)
  1. MAVIRET [Suspect]
     Active Substance: GLECAPREVIR\PIBRENTASVIR
     Indication: PRODUCT USED FOR UNKNOWN INDICATION
     Route: 048
     Dates: start: 20190905

REACTIONS (12)
  - Acute kidney injury [Unknown]
  - Tachypnoea [Unknown]
  - Pyrexia [Unknown]
  - Sepsis [Fatal]
  - Oxygen saturation decreased [Unknown]
  - Shock [Unknown]
  - Cholangitis [Fatal]
  - Liver transplant [Unknown]
  - Bile duct stenosis [Fatal]
  - Ascites [Unknown]
  - Tachycardia [Unknown]
  - Metabolic acidosis [Unknown]

NARRATIVE: CASE EVENT DATE: 2019
